FAERS Safety Report 13770007 (Version 2)
Quarter: 2017Q3

REPORT INFORMATION
  Report Type: Spontaneous
  Country: IT (occurrence: IT)
  Receive Date: 20170719
  Receipt Date: 20170724
  Transmission Date: 20171127
  Serious: Yes (Life-Threatening, Hospitalization)
  Sender: FDA-Public Use
  Company Number: PHHY2017IT105059

PATIENT
  Age: 42 Year
  Sex: Female
  Weight: 50 kg

DRUGS (10)
  1. CICLOSPORIN [Suspect]
     Active Substance: CYCLOSPORINE
     Indication: STILL^S DISEASE
     Dosage: 3 MG/KG, QD
     Route: 042
  2. ANAKINRA [Suspect]
     Active Substance: ANAKINRA
     Indication: STILL^S DISEASE
     Dosage: 100 MG, QD
     Route: 065
  3. HYDROXYCHLOROQUINE [Concomitant]
     Active Substance: HYDROXYCHLOROQUINE
     Indication: STILL^S DISEASE
     Dosage: 5 MG, QD
     Route: 065
  4. PARACETAMOL [Concomitant]
     Active Substance: ACETAMINOPHEN
     Indication: ARTHRITIS
     Route: 065
  5. CICLOSPORIN [Suspect]
     Active Substance: CYCLOSPORINE
     Dosage: 150 MG, QD
     Route: 042
  6. ANAKINRA [Suspect]
     Active Substance: ANAKINRA
     Dosage: 8 MG, QD (HIGH DOSE)
     Route: 065
  7. ANAKINRA [Suspect]
     Active Substance: ANAKINRA
     Dosage: 100 MG, Q6H, (4 TIMES A DAY)
     Route: 058
  8. METHYLPREDNISOLONE. [Suspect]
     Active Substance: METHYLPREDNISOLONE
     Indication: STILL^S DISEASE
     Dosage: 125 MG, Q6H, QD
     Route: 065
  9. METHYLPREDNISOLONE. [Suspect]
     Active Substance: METHYLPREDNISOLONE
     Dosage: 125 MG, QD
     Route: 042
  10. PREDNISONE. [Concomitant]
     Active Substance: PREDNISONE
     Indication: STILL^S DISEASE
     Dosage: 5 MG, QD
     Route: 065

REACTIONS (10)
  - Myocarditis [Recovered/Resolved]
  - General physical health deterioration [Recovered/Resolved]
  - Urinary tract infection pseudomonal [Unknown]
  - Drug ineffective for unapproved indication [Unknown]
  - Histiocytosis haematophagic [Unknown]
  - Still^s disease [Recovered/Resolved]
  - Sepsis [Unknown]
  - Disease recurrence [Recovered/Resolved]
  - Systemic inflammatory response syndrome [Recovering/Resolving]
  - Cardiac arrest [Recovered/Resolved]
